FAERS Safety Report 24240467 (Version 2)
Quarter: 2024Q3

REPORT INFORMATION
  Report Type: Spontaneous
  Country: NZ (occurrence: NZ)
  Receive Date: 20240822
  Receipt Date: 20240916
  Transmission Date: 20241017
  Serious: Yes (Death, Life-Threatening, Hospitalization, Other)
  Sender: MYLAN
  Company Number: NZ-MYLANLABS-2024M1076984

PATIENT
  Age: 67 Year
  Sex: Male

DRUGS (3)
  1. CLOZARIL [Suspect]
     Active Substance: CLOZAPINE
     Indication: Schizophrenia
     Dosage: 425 MILLIGRAM, QD
     Route: 048
     Dates: start: 19981222
  2. CLOZARIL [Suspect]
     Active Substance: CLOZAPINE
     Dosage: 25 MILLIGRAM, QD
     Route: 048
     Dates: start: 20220519
  3. CLOZARIL [Suspect]
     Active Substance: CLOZAPINE
     Dosage: 100 MILLIGRAM, PM
     Route: 048
     Dates: start: 20220519

REACTIONS (2)
  - Lung cancer metastatic [Fatal]
  - COVID-19 [Unknown]

NARRATIVE: CASE EVENT DATE: 20220401
